FAERS Safety Report 8246090-X (Version None)
Quarter: 2012Q1

REPORT INFORMATION
  Report Type: 
  Country: None (occurrence: None)
  Receive Date: 20120330
  Receipt Date: 20120322
  Transmission Date: 20120608
  Serious: Yes (Hospitalization)
  Sender: FDA-Public Use
  Company Number: US-ELI_LILLY_AND_COMPANY-US201202006689

PATIENT
  Sex: Female
  Weight: 59.864 kg

DRUGS (13)
  1. VANCOMYCIN [Concomitant]
  2. FORTEO [Suspect]
     Indication: OSTEOPOROSIS
     Dosage: 20 UG, QD
     Route: 058
     Dates: start: 20110831
  3. COMBIVENT [Concomitant]
  4. EXTRA STRENGTH TYLENOL [Concomitant]
  5. NASONEX [Concomitant]
  6. TESSALON [Concomitant]
  7. ACETYLCYSTEINE [Concomitant]
  8. OMEPRAZOLE [Concomitant]
  9. OXYGEN [Concomitant]
  10. VITAMIN D [Concomitant]
  11. FLOVENT HFA [Concomitant]
  12. INVANZ [Concomitant]
  13. ASPIRIN [Concomitant]
     Dosage: 81 MG, UNK

REACTIONS (5)
  - PULMONARY FIBROSIS [None]
  - HYPOXIA [None]
  - PANCREATITIS [None]
  - DYSPNOEA [None]
  - DEHYDRATION [None]
